FAERS Safety Report 4945075-6 (Version None)
Quarter: 2006Q1

REPORT INFORMATION
  Report Type: 
  Country: None (occurrence: None)
  Receive Date: 20060316
  Receipt Date: 20060306
  Transmission Date: 20060701
  Serious: Yes (Other)
  Sender: FDA-Public Use
  Company Number: US-JNJFOC-20060301617

PATIENT
  Sex: Male
  Weight: 51.71 kg

DRUGS (5)
  1. REMICADE [Suspect]
     Indication: RHEUMATOID ARTHRITIS
     Dosage: 2 VIALS EVERY 8 WEEKS,  LAST INFUSION WAS 11-JAN-05
     Route: 042
  2. METHOTREXATE [Concomitant]
  3. CELEBREX [Concomitant]
  4. PREDNISONE [Concomitant]
  5. FOLIC ACID [Concomitant]

REACTIONS (2)
  - B-CELL LYMPHOMA STAGE IV [None]
  - NON-HODGKIN'S LYMPHOMA [None]
